FAERS Safety Report 26186725 (Version 1)
Quarter: 2025Q4

REPORT INFORMATION
  Report Type: Spontaneous
  Country: US (occurrence: US)
  Receive Date: 20251222
  Receipt Date: 20251222
  Transmission Date: 20260118
  Serious: No
  Sender: SANOFI AVENTIS
  Company Number: US-SA-2025SA379704

PATIENT
  Age: 54 Year
  Sex: Female

DRUGS (10)
  1. DUPIXENT [Suspect]
     Active Substance: DUPILUMAB
     Dosage: 300 MG, QOW
     Route: 058
  2. AMLODIPINE [Concomitant]
     Active Substance: AMLODIPINE BESYLATE
  3. DULOXETINE [Concomitant]
     Active Substance: DULOXETINE
  4. KENALOG [Concomitant]
     Active Substance: TRIAMCINOLONE ACETONIDE
  5. MOUNJARO [Concomitant]
     Active Substance: TIRZEPATIDE
  6. SIMVASTATIN [Concomitant]
     Active Substance: SIMVASTATIN
  7. HYALURONATE SODIUM [Concomitant]
     Active Substance: HYALURONATE SODIUM
  8. TEMAZEPAM [Concomitant]
     Active Substance: TEMAZEPAM
  9. MOUNJARO [Concomitant]
     Active Substance: TIRZEPATIDE
  10. MOUNJARO [Concomitant]
     Active Substance: TIRZEPATIDE

REACTIONS (1)
  - Sleep disorder due to a general medical condition [Unknown]

NARRATIVE: CASE EVENT DATE: 20251101
